FAERS Safety Report 9397255 (Version 5)
Quarter: 2014Q2

REPORT INFORMATION
  Report Type: Spontaneous
  Country: DK (occurrence: DK)
  Receive Date: 20130712
  Receipt Date: 20140527
  Transmission Date: 20141212
  Serious: Yes (Other)
  Sender: FDA-Public Use
  Company Number: DK-JNJFOC-20130620584

PATIENT
  Age: 73 Year
  Sex: Female

DRUGS (3)
  1. REMICADE [Suspect]
     Indication: RHEUMATOID ARTHRITIS
     Dosage: 140 MG ON WEEK 0, 2, 6, +8
     Route: 042
     Dates: start: 20120110
  2. REMICADE [Suspect]
     Indication: RHEUMATOID ARTHRITIS
     Dosage: 130 MG ON WEEK 0, 2, 6, +8
     Route: 042
     Dates: start: 20130425, end: 20130425
  3. METHOTREXATE [Concomitant]
     Indication: RHEUMATOID ARTHRITIS
     Dosage: 10 (UNITS UNSPECIFIED)
     Route: 058
     Dates: start: 20081010

REACTIONS (5)
  - Diffuse large B-cell lymphoma stage IV [Not Recovered/Not Resolved]
  - Pleural effusion [Not Recovered/Not Resolved]
  - Lung infiltration [Not Recovered/Not Resolved]
  - Metastases to diaphragm [Recovered/Resolved]
  - Weight decreased [Unknown]
